FAERS Safety Report 16922854 (Version 1)
Quarter: 2019Q4

REPORT INFORMATION
  Report Type: Spontaneous
  Country: CA (occurrence: CA)
  Receive Date: 20191016
  Receipt Date: 20191016
  Transmission Date: 20200122
  Serious: Yes (Death, Hospitalization)
  Sender: FDA-Public Use
  Company Number: CA-TEVA-2019-CA-1122190

PATIENT
  Age: 82 Year
  Sex: Female

DRUGS (20)
  1. BISOPROLOL [Concomitant]
     Active Substance: BISOPROLOL
  2. RABEPRAZOLE [Concomitant]
     Active Substance: RABEPRAZOLE
  3. SENOKOT [Concomitant]
     Active Substance: SENNOSIDES
  4. ELTROXIN [Concomitant]
     Active Substance: LEVOTHYROXINE
  5. FUROSEMIDE. [Concomitant]
     Active Substance: FUROSEMIDE
  6. ROSUVASTATIN. [Concomitant]
     Active Substance: ROSUVASTATIN
  7. HYDROCODONE [Concomitant]
     Active Substance: HYDROCODONE
  8. TERAZOSIN [Concomitant]
     Active Substance: TERAZOSIN HYDROCHLORIDE
  9. ACETAMINOPHEN AND CODEINE [Concomitant]
     Active Substance: ACETAMINOPHEN\CODEINE PHOSPHATE
  10. CALCITRIOL. [Concomitant]
     Active Substance: CALCITRIOL
  11. DOMPERIDONE [Concomitant]
     Active Substance: DOMPERIDONE
  12. ZYLOPRIM [Concomitant]
     Active Substance: ALLOPURINOL
  13. LANTUS [Concomitant]
     Active Substance: INSULIN GLARGINE
  14. LINAGLIPTIN [Concomitant]
     Active Substance: LINAGLIPTIN
  15. PROLIA [Concomitant]
     Active Substance: DENOSUMAB
  16. EZETIMIBE. [Concomitant]
     Active Substance: EZETIMIBE
  17. SYMBICORT [Concomitant]
     Active Substance: BUDESONIDE\FORMOTEROL FUMARATE DIHYDRATE
  18. SILDENAFIL CITRATE. [Suspect]
     Active Substance: SILDENAFIL CITRATE
     Indication: PULMONARY ARTERIAL HYPERTENSION
     Dosage: 60 MILLIGRAM DAILY;
     Route: 048
  19. HUMALOG [Concomitant]
     Active Substance: INSULIN LISPRO
  20. SALBUTAMOL [Concomitant]
     Active Substance: ALBUTEROL

REACTIONS (2)
  - Death [Fatal]
  - General physical health deterioration [Fatal]
